FAERS Safety Report 4924326-8 (Version None)
Quarter: 2006Q1

REPORT INFORMATION
  Report Type: 
  Country: None (occurrence: None)
  Receive Date: 20060227
  Receipt Date: 20060112
  Transmission Date: 20060701
  Serious: No
  Sender: FDA-Public Use
  Company Number: US-GLAXOSMITHKLINE-A0589047A

PATIENT
  Age: 29 Year
  Sex: Male

DRUGS (6)
  1. WELLBUTRIN XL [Suspect]
     Indication: DEPRESSION
     Dosage: 150MG PER DAY
     Route: 048
     Dates: start: 20050101
  2. ZOLOFT [Concomitant]
  3. SEROQUEL [Concomitant]
  4. TRILEPTAL [Concomitant]
  5. ATIVAN [Concomitant]
  6. ENALAPRIL [Concomitant]

REACTIONS (1)
  - TINNITUS [None]
